FAERS Safety Report 10567017 (Version 1)
Quarter: 2014Q4

REPORT INFORMATION
  Report Type: Spontaneous
  Country: ES (occurrence: ES)
  Receive Date: 20141105
  Receipt Date: 20141105
  Transmission Date: 20150529
  Serious: Yes (Hospitalization, Other)
  Sender: FDA-Public Use
  Company Number: ES-GILEAD-2014-0120485

PATIENT
  Age: 57 Year
  Sex: Female

DRUGS (8)
  1. PROBENECID. [Concomitant]
     Active Substance: PROBENECID
     Indication: PROPHYLAXIS
     Dosage: 2000 MG, UNK
     Route: 048
     Dates: start: 20131205, end: 20131217
  2. PANTOPRAZOLE [Concomitant]
     Active Substance: PANTOPRAZOLE SODIUM
     Indication: PROPHYLAXIS AGAINST GASTROINTESTINAL ULCER
     Dosage: 1 CP
     Route: 048
     Dates: start: 20131010
  3. VISTIDE [Interacting]
     Active Substance: CIDOFOVIR
     Indication: CYTOMEGALOVIRUS INFECTION
     Dosage: 320 MG, UNK
     Route: 042
     Dates: start: 20131209, end: 20131217
  4. INSULINA DETEMIR [Concomitant]
     Indication: TYPE 2 DIABETES MELLITUS
     Dosage: IRREGULAR
     Route: 058
     Dates: start: 20131011
  5. METILPREDNISOLONA                  /00049601/ [Concomitant]
     Dosage: 30 MG CADA 12H
     Route: 048
     Dates: start: 20131209, end: 20131217
  6. AMBISOME [Suspect]
     Active Substance: AMPHOTERICIN B
     Indication: PRODUCT USED FOR UNKNOWN INDICATION
     Dosage: 250 MG, UNK
     Route: 042
     Dates: start: 20131122, end: 20131222
  7. INSULINA GLULISINA [Concomitant]
     Indication: TYPE 2 DIABETES MELLITUS
     Dosage: 2 DF, TID
     Route: 058
     Dates: start: 20130904
  8. CELLCEPT [Concomitant]
     Active Substance: MYCOPHENOLATE MOFETIL\MYCOPHENOLATE MOFETIL HYDROCHLORIDE
     Dosage: 1000 MG
     Route: 048
     Dates: start: 20131205

REACTIONS (2)
  - Respiratory arrest [Recovered/Resolved]
  - Hypokalaemia [Recovered/Resolved]

NARRATIVE: CASE EVENT DATE: 20131217
